FAERS Safety Report 10073559 (Version 1)
Quarter: 2014Q2

REPORT INFORMATION
  Report Type: Spontaneous
  Country: ES (occurrence: ES)
  Receive Date: 20140411
  Receipt Date: 20140411
  Transmission Date: 20141212
  Serious: Yes (Hospitalization, Other)
  Sender: FDA-Public Use
  Company Number: ES-WATSON-2014-06968

PATIENT
  Age: 74 Year
  Sex: Male

DRUGS (4)
  1. CEFTRIAXONE (UNKNOWN) [Suspect]
     Indication: EVIDENCE BASED TREATMENT
     Dosage: UNK
     Route: 065
  2. CLOXACILLIN [Suspect]
     Indication: EVIDENCE BASED TREATMENT
     Dosage: UNK
     Route: 065
  3. AMPICILLIN (UNKNOWN) [Suspect]
     Indication: EVIDENCE BASED TREATMENT
     Dosage: UNK
     Route: 065
  4. GENTAMICIN (UNKNOWN) [Suspect]
     Indication: EVIDENCE BASED TREATMENT
     Dosage: UNK
     Route: 065

REACTIONS (1)
  - Endocarditis candida [Recovered/Resolved]
